FAERS Safety Report 8416346-6 (Version None)
Quarter: 2012Q2

REPORT INFORMATION
  Report Type: 
  Country: None (occurrence: None)
  Receive Date: 20120606
  Receipt Date: 20120522
  Transmission Date: 20120825
  Serious: Yes (Death, Hospitalization, Congenital Anomaly, Other)
  Sender: FDA-Public Use
  Company Number: DE-WATSON-2012-09119

PATIENT
  Sex: Male
  Weight: 2.9 kg

DRUGS (3)
  1. FOLIC ACID [Concomitant]
     Indication: PROPHYLAXIS OF NEURAL TUBE DEFECT
     Dosage: 0.4 MG, DAILY
     Route: 064
  2. METFORMIN HCL [Suspect]
     Indication: INSULIN RESISTANCE
     Dosage: 1500 MG/DAY UNTIL GW 18, AFTERWARDS 1000 MG/DAY
     Route: 064
     Dates: start: 20091015, end: 20100629
  3. PRESINOL [Concomitant]
     Indication: PRE-ECLAMPSIA
     Dosage: 1500 MG, DAILY
     Route: 064

REACTIONS (8)
  - NEONATAL RESPIRATORY DISTRESS SYNDROME [None]
  - FEEDING DISORDER NEONATAL [None]
  - HYPOXIC-ISCHAEMIC ENCEPHALOPATHY [None]
  - CONGENITAL THROMBOCYTE DISORDER [None]
  - HYPOSPADIAS [None]
  - MATERNAL DRUGS AFFECTING FOETUS [None]
  - CEREBRAL HAEMORRHAGE FOETAL [None]
  - MACROCEPHALY [None]
